FAERS Safety Report 10436630 (Version 1)
Quarter: 2014Q3

REPORT INFORMATION
  Report Type: Spontaneous
  Country: US (occurrence: US)
  Receive Date: 20140908
  Receipt Date: 20140908
  Transmission Date: 20150326
  Serious: No
  Sender: FDA-Public Use
  Company Number: US-BRISTOL-MYERS SQUIBB COMPANY-20230462

PATIENT
  Age: 16 Year
  Sex: Male

DRUGS (6)
  1. FOLIC ACID. [Concomitant]
     Active Substance: FOLIC ACID
  2. HUMATROPE [Concomitant]
     Active Substance: SOMATROPIN
  3. LUVOX [Concomitant]
     Active Substance: FLUVOXAMINE MALEATE
  4. VITAMIN D [Concomitant]
     Active Substance: CHOLECALCIFEROL
  5. ABILIFY [Suspect]
     Active Substance: ARIPIPRAZOLE
     Indication: DEPRESSION
     Route: 048
  6. ZYRTEC [Concomitant]
     Active Substance: CETIRIZINE HYDROCHLORIDE

REACTIONS (2)
  - Tremor [Not Recovered/Not Resolved]
  - Somnolence [Recovering/Resolving]
